FAERS Safety Report 14031389 (Version 2)
Quarter: 2017Q4

REPORT INFORMATION
  Report Type: Spontaneous
  Country: FR (occurrence: FR)
  Receive Date: 20171003
  Receipt Date: 20171031
  Transmission Date: 20180321
  Serious: Yes (Other)
  Sender: FDA-Public Use
  Company Number: FR-MERCK KGAA-2028394

PATIENT
  Age: 48 Year
  Sex: Female

DRUGS (2)
  1. LEVOTHYROX [Suspect]
     Active Substance: LEVOTHYROXINE
     Route: 048
     Dates: start: 20170902
  2. NOVOTHYROX [Suspect]
     Active Substance: LEVOTHYROXINE SODIUM
     Indication: HYPOTHYROIDISM
     Route: 048

REACTIONS (9)
  - Arthralgia [Not Recovered/Not Resolved]
  - Initial insomnia [Not Recovered/Not Resolved]
  - Blood thyroid stimulating hormone [Not Recovered/Not Resolved]
  - Headache [Not Recovered/Not Resolved]
  - Dizziness [Not Recovered/Not Resolved]
  - Nausea [Not Recovered/Not Resolved]
  - Muscle spasms [Not Recovered/Not Resolved]
  - Myalgia [Not Recovered/Not Resolved]
  - Irritability [Not Recovered/Not Resolved]

NARRATIVE: CASE EVENT DATE: 201706
